FAERS Safety Report 10589484 (Version 1)
Quarter: 2014Q4

REPORT INFORMATION
  Report Type: Spontaneous
  Country: IT (occurrence: None)
  Receive Date: 20141114
  Receipt Date: 20141114
  Transmission Date: 20150529
  Serious: Yes (Life-Threatening)
  Sender: FDA-Public Use
  Company Number: 2620441

PATIENT
  Age: 68 Year
  Sex: Female

DRUGS (9)
  1. (OXALIPLATIN) [Suspect]
     Active Substance: OXALIPLATIN
     Indication: COLON CANCER
     Dosage: 190 MG MILLIGRAM (S), TOTAL, INTRAVENOUS (NOT OTHERWISE SPECIFIED)
     Route: 042
     Dates: start: 20141030, end: 20141030
  2. ALOXI [Concomitant]
     Active Substance: PALONOSETRON HYDROCHLORIDE
  3. ZANTAC [Concomitant]
     Active Substance: RANITIDINE HYDROCHLORIDE
  4. PANTORC [Concomitant]
     Active Substance: PANTOPRAZOLE SODIUM
  5. TRIATEC [Concomitant]
     Active Substance: RAMIPRIL
  6. XELODA [Concomitant]
     Active Substance: CAPECITABINE
  7. TRIMETON [Concomitant]
     Active Substance: CHLORPHENIRAMINE MALEATE
  8. SOLDESAM [Concomitant]
     Active Substance: DEXAMETHASONE
  9. ISOPTIN [Concomitant]
     Active Substance: VERAPAMIL HYDROCHLORIDE

REACTIONS (6)
  - Tachypnoea [None]
  - Stridor [None]
  - Paraesthesia [None]
  - Suffocation feeling [None]
  - Dyspnoea [None]
  - Sinus tachycardia [None]

NARRATIVE: CASE EVENT DATE: 20141030
